FAERS Safety Report 6069320-1 (Version None)
Quarter: 2009Q1

REPORT INFORMATION
  Report Type: 
  Country: None (occurrence: None)
  Receive Date: 20090206
  Receipt Date: 20090115
  Transmission Date: 20090719
  Serious: Yes (Hospitalization)
  Sender: FDA-Public Use
  Company Number: AU-PFIZER INC-2009158228

PATIENT

DRUGS (5)
  1. VARENICLINE TARTRATE [Suspect]
     Indication: TOBACCO USER
     Dosage: 500 UG, 1X/DAY
     Route: 048
     Dates: start: 20080822, end: 20080824
  2. ALCOHOL [Suspect]
     Dosage: UNK
     Route: 048
  3. INDAPAMIDE HEMIHYDRATE [Concomitant]
     Indication: HYPERTENSION
     Dosage: 2.5 MG, 1X/DAY
  4. LERCANIDIPINE HYDROCHLORIDE [Concomitant]
     Indication: HYPERTENSION
     Dosage: 20 MG, 1X/DAY
     Route: 048
  5. THIAMINE [Concomitant]
     Dosage: 100 MG, UNK
     Route: 048

REACTIONS (9)
  - AGITATION [None]
  - DIZZINESS [None]
  - HALLUCINATION [None]
  - HYPONATRAEMIA [None]
  - INSOMNIA [None]
  - LIVER FUNCTION TEST ABNORMAL [None]
  - MYALGIA [None]
  - NECK PAIN [None]
  - POLYDIPSIA [None]
